FAERS Safety Report 5490523-9 (Version None)
Quarter: 2007Q4

REPORT INFORMATION
  Report Type: 
  Country: None (occurrence: None)
  Receive Date: 20071019
  Receipt Date: 20071009
  Transmission Date: 20080405
  Serious: Yes (Other)
  Sender: FDA-Public Use
  Company Number: DK-JNJFOC-20071001286

PATIENT
  Age: 42 Year
  Sex: Male

DRUGS (4)
  1. REMICADE [Suspect]
     Indication: RHEUMATOID ARTHRITIS
     Route: 042
  2. CONFORTID [Concomitant]
     Dosage: STARTED BEFORE 1996
  3. AMITRIPTYLINE HCL [Concomitant]
     Dosage: STARTED BEFORE 2003
  4. PINEX [Concomitant]
     Dosage: STARTED BEFORE 1996

REACTIONS (2)
  - MYCOBACTERIUM AVIUM COMPLEX INFECTION [None]
  - PULMONARY TUBERCULOSIS [None]
